FAERS Safety Report 15341667 (Version 1)
Quarter: 2018Q3

REPORT INFORMATION
  Report Type: Spontaneous
  Country: DE (occurrence: DE)
  Receive Date: 20180901
  Receipt Date: 20180901
  Transmission Date: 20181010
  Serious: Yes (Other)
  Sender: FDA-Public Use
  Company Number: DE-SUN PHARMACEUTICAL INDUSTRIES LTD-2018RR-183117

PATIENT
  Age: 78 Year
  Sex: Female
  Weight: 80 kg

DRUGS (5)
  1. METOPROLOL SUCCINAT 47.5 MG [Concomitant]
     Indication: HYPERTENSION
     Dosage: 1/2?0?1
     Route: 048
     Dates: start: 201312
  2. DICLAC RETARD [Concomitant]
     Active Substance: DICLOFENAC SODIUM
     Indication: OSTEOARTHRITIS
     Dosage: DAILY DOSE: 1 DF DOSAGE FORM EVERY DAYS
     Route: 048
     Dates: start: 2017
  3. ALENDRONIC ACID [Suspect]
     Active Substance: ALENDRONIC ACID
     Indication: OSTEOPOROSIS
     Dosage: DAILY DOSE: 70 MG MILLGRAM(S) EVERY WEEKS
     Route: 048
     Dates: start: 20170908, end: 20180604
  4. L?THYROXIN [Concomitant]
     Active Substance: LEVOTHYROXINE SODIUM
     Indication: HYPOTHYROIDISM
     Dosage: DAILY DOSE: 75 ?G MICROGRAM(S) EVERY DAYS
     Route: 048
     Dates: start: 2010
  5. CALCIVIT D FORTE [Concomitant]
     Indication: OSTEOPOROSIS
     Dosage: DAILY DOSE: 1 DF DOSAGE FORM EVERY DAYS
     Route: 048
     Dates: start: 20170831

REACTIONS (3)
  - Hallucination, visual [Not Recovered/Not Resolved]
  - Sleep disorder [Not Recovered/Not Resolved]
  - Hallucination, auditory [Not Recovered/Not Resolved]

NARRATIVE: CASE EVENT DATE: 20180604
